FAERS Safety Report 7980027-3 (Version None)
Quarter: 2011Q4

REPORT INFORMATION
  Report Type: 
  Country: None (occurrence: None)
  Receive Date: 20111214
  Receipt Date: 20111205
  Transmission Date: 20120403
  Serious: Yes (Death)
  Sender: FDA-Public Use
  Company Number: PHHY2011US108222

PATIENT
  Age: 16 Year
  Sex: Female

DRUGS (7)
  1. METOPROLOL TARTRATE [Suspect]
  2. SALICYLATES [Suspect]
  3. BUPROPION HCL [Suspect]
  4. QUETIAPINE [Suspect]
  5. AMLODIPINE [Suspect]
  6. LAMOTRIGINE [Suspect]
  7. AMPHETAMINE AND DEXTROAMPHETAMINE SALTS [Suspect]

REACTIONS (1)
  - SUICIDAL IDEATION [None]
